FAERS Safety Report 6529169-X (Version None)
Quarter: 2010Q1

REPORT INFORMATION
  Report Type: 
  Country: None (occurrence: None)
  Receive Date: 20100107
  Receipt Date: 20091228
  Transmission Date: 20100710
  Serious: Yes (Other)
  Sender: FDA-Public Use
  Company Number: US-JNJFOC-20091207436

PATIENT
  Sex: Female
  Weight: 99.79 kg

DRUGS (13)
  1. REMICADE [Suspect]
     Indication: RHEUMATOID ARTHRITIS
     Route: 042
     Dates: start: 20050101, end: 20070101
  2. LIPITOR [Concomitant]
  3. ELAVIL [Concomitant]
  4. PREDNISONE [Concomitant]
  5. PREDNISONE [Concomitant]
  6. LYRICA [Concomitant]
  7. NEXIUM [Concomitant]
  8. KADIAN [Concomitant]
  9. MORPHINE SULFATE [Concomitant]
     Dosage: 1-2 A DAY PRN
  10. FOLIC ACID [Concomitant]
  11. VITAMIN [Concomitant]
  12. CITRACAL [Concomitant]
     Dosage: 2000 UNITS
  13. ESTROVEN [Concomitant]

REACTIONS (3)
  - STAPHYLOCOCCAL INFECTION [None]
  - SURGERY [None]
  - THERAPEUTIC RESPONSE DECREASED [None]
